FAERS Safety Report 7207197-9 (Version None)
Quarter: 2011Q1

REPORT INFORMATION
  Report Type: 
  Country: None (occurrence: None)
  Receive Date: 20110103
  Receipt Date: 20101227
  Transmission Date: 20110831
  Serious: Yes (Death, Hospitalization)
  Sender: FDA-Public Use
  Company Number: JP-ROCHE-747747

PATIENT
  Age: 70 Year
  Sex: Male

DRUGS (10)
  1. AVASTIN [Suspect]
     Dosage: DOSAGE IS UNCERTAIN
     Route: 041
     Dates: start: 20100101, end: 20100601
  2. FLUOROURACIL [Concomitant]
     Dosage: INTRAVENOUS BOLUS
     Route: 041
     Dates: start: 20090401
  3. IRINOTECAN HYDROCHLORIDE [Concomitant]
     Dosage: DOSAGE IS UNCERTAIN.
     Route: 041
     Dates: start: 20100101
  4. FLUOROURACIL [Concomitant]
     Dosage: INTRAVENOUS DRIP
     Route: 041
     Dates: start: 20100101
  5. AVASTIN [Suspect]
     Indication: COLON CANCER RECURRENT
     Dosage: DOSAGE IS UNCERTAIN
     Route: 041
     Dates: start: 20090401
  6. ELPLAT [Concomitant]
     Dosage: DOSAGE IS UNCERTAIN.
     Route: 041
     Dates: start: 20090401
  7. LEVOFOLINATE [Concomitant]
     Dosage: DOSAGE IS UNCERTAIN.
     Route: 041
     Dates: start: 20100101
  8. FLUOROURACIL [Concomitant]
     Dosage: INTRAVENOUS DRIP
     Route: 041
     Dates: start: 20090401
  9. LEVOFOLINATE [Concomitant]
     Dosage: DOSAGE IS UNCERTAIN.
     Route: 041
     Dates: start: 20090401
  10. FLUOROURACIL [Concomitant]
     Dosage: DOSAGE IS UNCERTAIN, INTRAVENOUS BOLUS
     Route: 041
     Dates: start: 20100101

REACTIONS (3)
  - DECREASED APPETITE [None]
  - DISEASE PROGRESSION [None]
  - CYTOMEGALOVIRUS GASTROINTESTINAL INFECTION [None]
